FAERS Safety Report 21641489 (Version 1)
Quarter: 2022Q4

REPORT INFORMATION
  Report Type: Spontaneous
  Country: US (occurrence: US)
  Receive Date: 20221125
  Receipt Date: 20221125
  Transmission Date: 20230112
  Serious: Yes (Other)
  Sender: FDA-Public Use
  Company Number: US-APOTEX-2022AP015769

PATIENT
  Age: 70 Year
  Sex: Female
  Weight: 80 kg

DRUGS (1)
  1. LITHIUM [Suspect]
     Active Substance: LITHIUM
     Indication: Bipolar I disorder
     Dosage: 300 MILLIGRAM, TID
     Route: 048

REACTIONS (3)
  - Parathyroid tumour benign [Unknown]
  - Hyperparathyroidism primary [Recovering/Resolving]
  - Hypercalcaemia [Recovering/Resolving]
